FAERS Safety Report 6586341-0 (Version None)
Quarter: 2010Q1

REPORT INFORMATION
  Report Type: 
  Country: None (occurrence: None)
  Receive Date: 20100217
  Receipt Date: 20100210
  Transmission Date: 20100710
  Serious: Yes (Hospitalization, Other)
  Sender: FDA-Public Use
  Company Number: FR-GENENTECH-217228

PATIENT
  Sex: Male

DRUGS (3)
  1. RAPTIVA [Suspect]
     Indication: PSORIASIS
     Dosage: UNK MG/KG, UNK
     Route: 058
     Dates: start: 20050713, end: 20050723
  2. DILTIAZEM HCL [Concomitant]
     Indication: HYPERTENSION
  3. DICLOFENAC SODIUM [Concomitant]
     Indication: ARTHRALGIA
     Dosage: UNK
     Dates: start: 20050601

REACTIONS (5)
  - ALANINE AMINOTRANSFERASE INCREASED [None]
  - ERYTHRODERMIC PSORIASIS [None]
  - NIGHT SWEATS [None]
  - PEMPHIGOID [None]
  - WEIGHT DECREASED [None]
